FAERS Safety Report 5592352-4 (Version None)
Quarter: 2008Q1

REPORT INFORMATION
  Report Type: 
  Country: None (occurrence: None)
  Receive Date: 20080111
  Receipt Date: 20071226
  Transmission Date: 20080703
  Serious: Yes (Life-Threatening, Other)
  Sender: FDA-Public Use
  Company Number: 2006JP001624

PATIENT
  Age: 29 Year
  Sex: Female
  Weight: 39 kg

DRUGS (11)
  1. PROGRAF [Suspect]
     Indication: SMALL INTESTINE TRANSPLANT
     Dosage: 2.5 MG, BID, ORAL
     Route: 048
     Dates: start: 20040316, end: 20051101
  2. RAPAMYCIN                          (SIROLIMUS)                  PER OR [Suspect]
     Indication: SMALL INTESTINE TRANSPLANT
     Dosage: 4 MG, UID/QD, ORAL
     Route: 048
     Dates: start: 20051101
  3. DACLIZUMAB                   (DACLIZUMAB)                  FORMULATION [Suspect]
     Indication: SMALL INTESTINE TRANSPLANT
     Dosage: SEE IMAGE
     Route: 048
     Dates: start: 20040316, end: 20040316
  4. DACLIZUMAB                   (DACLIZUMAB)                  FORMULATION [Suspect]
     Indication: SMALL INTESTINE TRANSPLANT
     Dosage: SEE IMAGE
     Route: 048
     Dates: start: 20040320, end: 20040320
  5. DACLIZUMAB                   (DACLIZUMAB)                  FORMULATION [Suspect]
     Indication: SMALL INTESTINE TRANSPLANT
     Dosage: SEE IMAGE
     Route: 048
     Dates: start: 20040327, end: 20040327
  6. DACLIZUMAB                   (DACLIZUMAB)                  FORMULATION [Suspect]
     Indication: SMALL INTESTINE TRANSPLANT
     Dosage: SEE IMAGE
     Route: 048
     Dates: start: 20040410, end: 20040605
  7. DACLIZUMAB                   (DACLIZUMAB)                  FORMULATION [Suspect]
     Indication: SMALL INTESTINE TRANSPLANT
     Dosage: SEE IMAGE
     Route: 048
     Dates: start: 20040619, end: 20040828
  8. DACLIZUMAB                   (DACLIZUMAB)                  FORMULATION [Suspect]
     Indication: SMALL INTESTINE TRANSPLANT
     Dosage: SEE IMAGE
     Route: 048
     Dates: start: 20051101
  9. METHYLPREDNISOLONE [Suspect]
     Indication: SMALL INTESTINE TRANSPLANT
     Dosage: 10 MG/KG, IV NOS; 0.5 MG/KG, IV NOS
     Route: 042
     Dates: start: 20040316, end: 20040321
  10. METHYLPREDNISOLONE [Suspect]
     Indication: SMALL INTESTINE TRANSPLANT
     Dosage: 10 MG/KG, IV NOS; 0.5 MG/KG, IV NOS
     Route: 042
     Dates: start: 20040322, end: 20040413
  11. METHYLPREDNISOLONE                   (METHYLPREDNISOLONE) PER ORAL NOS [Suspect]
     Indication: SMALL INTESTINE TRANSPLANT
     Dosage: 0.5 MG/KG, ORAL
     Route: 048
     Dates: start: 20040414

REACTIONS (5)
  - DEHYDRATION [None]
  - ELECTROLYTE IMBALANCE [None]
  - ILL-DEFINED DISORDER [None]
  - SEPSIS [None]
  - TRANSPLANT REJECTION [None]
